FAERS Safety Report 12439570 (Version 2)
Quarter: 2016Q3

REPORT INFORMATION
  Report Type: Spontaneous
  Country: DE (occurrence: DE)
  Receive Date: 20160606
  Receipt Date: 20160701
  Transmission Date: 20161109
  Serious: Yes (Hospitalization, Other)
  Sender: FDA-Public Use
  Company Number: DE-GILEAD-2016-0210799

PATIENT
  Age: 71 Year
  Sex: Male
  Weight: 66 kg

DRUGS (9)
  1. IDELALISIB [Suspect]
     Active Substance: IDELALISIB
     Indication: CHRONIC LYMPHOCYTIC LEUKAEMIA
     Dosage: 150 MG, UNK
     Route: 065
     Dates: start: 201503, end: 201603
  2. VIREAD [Concomitant]
     Active Substance: TENOFOVIR DISOPROXIL FUMARATE
     Indication: CHRONIC HEPATITIS B
     Dosage: 245 MG, UNK
     Route: 048
  3. ACC                                /00082801/ [Concomitant]
     Dosage: 600 MG, UNK
     Route: 048
     Dates: start: 20160226
  4. HYDROCORTISON                      /00028601/ [Concomitant]
     Active Substance: HYDROCORTISONE
     Dosage: 10 MG, UNK
     Route: 048
  5. ALLOPURINOL. [Concomitant]
     Active Substance: ALLOPURINOL
     Dosage: 100 MG, UNK
     Route: 048
  6. RITUXIMAB [Suspect]
     Active Substance: RITUXIMAB
     Indication: CHRONIC LYMPHOCYTIC LEUKAEMIA
     Route: 065
  7. IMBRUVICA [Concomitant]
     Active Substance: IBRUTINIB
     Dosage: UNK
     Dates: start: 201508
  8. SPIRONOLACTON [Concomitant]
     Active Substance: SPIRONOLACTONE
     Dosage: 50 MG, UNK
     Route: 048
  9. FURESIS [Concomitant]
     Active Substance: FUROSEMIDE
     Dosage: 20 MG, UNK
     Route: 048

REACTIONS (14)
  - Splenic infarction [Unknown]
  - Disease progression [Unknown]
  - Drug ineffective [Unknown]
  - Decreased appetite [Unknown]
  - Paraneoplastic syndrome [Unknown]
  - Cachexia [Unknown]
  - Atypical pneumonia [Unknown]
  - General physical health deterioration [Unknown]
  - Candida infection [Unknown]
  - Anaemia [Unknown]
  - Streptococcal bacteraemia [Unknown]
  - Oedema peripheral [Unknown]
  - Enterobacter infection [Unknown]
  - Pneumonia fungal [Unknown]

NARRATIVE: CASE EVENT DATE: 20160226
